FAERS Safety Report 11398239 (Version 1)
Quarter: 2015Q3

REPORT INFORMATION
  Report Type: Spontaneous
  Country: AR (occurrence: AR)
  Receive Date: 20150820
  Receipt Date: 20150820
  Transmission Date: 20151125
  Serious: Yes (Other)
  Sender: FDA-Public Use
  Company Number: AR-ROCHE-1620377

PATIENT
  Age: 58 Year
  Sex: Female

DRUGS (5)
  1. TRASTUZUMAB [Suspect]
     Active Substance: TRASTUZUMAB
     Route: 042
     Dates: end: 20111227
  2. TRASTUZUMAB [Suspect]
     Active Substance: TRASTUZUMAB
     Indication: NEOPLASM MALIGNANT
     Dosage: LOADING DOSE
     Route: 042
     Dates: start: 20100826
  3. PACLITAXEL. [Suspect]
     Active Substance: PACLITAXEL
     Dosage: X 12
     Route: 065
     Dates: start: 20100826
  4. TAMOXIFEN [Concomitant]
     Active Substance: TAMOXIFEN
     Route: 065
  5. PACLITAXEL. [Suspect]
     Active Substance: PACLITAXEL
     Dosage: ANOTHER 9 CYCLES
     Route: 065
     Dates: end: 20111227

REACTIONS (4)
  - Neutropenia [Recovered/Resolved]
  - Ovarian cancer [Unknown]
  - Skeletal injury [Not Recovered/Not Resolved]
  - Skin infection [Recovered/Resolved]

NARRATIVE: CASE EVENT DATE: 201011
